FAERS Safety Report 5525029-1 (Version None)
Quarter: 2007Q4

REPORT INFORMATION
  Report Type: 
  Country: None (occurrence: None)
  Receive Date: 20071126
  Receipt Date: 20071112
  Transmission Date: 20080405
  Serious: Yes (Life-Threatening, Hospitalization, Other)
  Sender: FDA-Public Use
  Company Number: US-ELI_LILLY_AND_COMPANY-US200711003586

PATIENT
  Sex: Female
  Weight: 107.3 kg

DRUGS (13)
  1. CYMBALTA [Suspect]
     Dosage: 60 MG, DAILY (1/D)
     Dates: start: 20050518, end: 20050608
  2. CYMBALTA [Suspect]
     Dosage: 60 MG, UNK
     Route: 048
     Dates: start: 20050829
  3. SYMBYAX [Suspect]
     Dosage: 6/25
     Dates: start: 20050608, end: 20050829
  4. BYETTA [Concomitant]
     Dosage: 5 UG, 2/D
     Route: 058
     Dates: start: 20050829, end: 20050901
  5. BYETTA [Concomitant]
     Dosage: 10 UG, 2/D
     Route: 058
     Dates: start: 20050901, end: 20050929
  6. LIPITOR [Concomitant]
     Indication: BLOOD CHOLESTEROL
     Dosage: 20 MG, DAILY (1/D)
     Dates: start: 20050413, end: 20050829
  7. LIPITOR [Concomitant]
     Dosage: 40 MG, DAILY (1/D)
     Dates: start: 20050901
  8. NORVASC [Concomitant]
     Dosage: 10 MG, DAILY (1/D)
     Dates: start: 20050413
  9. PREVACID [Concomitant]
     Dosage: 30 MG, DAILY (1/D)
     Dates: start: 20050518
  10. XANAX [Concomitant]
     Dosage: 0.5 MG, AS NEEDED
     Dates: start: 20050428, end: 20050829
  11. XANAX [Concomitant]
     Dosage: 0.5 MG, AS NEEDED
     Dates: start: 20051005
  12. LEXAPRO [Concomitant]
     Dosage: 10 MG, DAILY (1/D)
     Dates: start: 20050506, end: 20050829
  13. REMERON [Concomitant]
     Dosage: 30 MG, EACH EVENING
     Dates: start: 20050608, end: 20050829

REACTIONS (25)
  - ACUTE MYOCARDIAL INFARCTION [None]
  - ANGINA PECTORIS [None]
  - ANXIETY [None]
  - BLOOD GLUCOSE DECREASED [None]
  - BLOOD GLUCOSE FLUCTUATION [None]
  - BLOOD PRESSURE INCREASED [None]
  - CARDIAC FAILURE CONGESTIVE [None]
  - CORONARY ARTERY DISEASE [None]
  - CORONARY ARTERY OCCLUSION [None]
  - DEPRESSION [None]
  - DIARRHOEA [None]
  - DYSPNOEA [None]
  - FLATULENCE [None]
  - HEADACHE [None]
  - HYPOAESTHESIA [None]
  - JOB DISSATISFACTION [None]
  - PALPITATIONS [None]
  - PROCEDURAL PAIN [None]
  - RASH [None]
  - SINUS TACHYCARDIA [None]
  - STOMACH DISCOMFORT [None]
  - TYPE 2 DIABETES MELLITUS [None]
  - VENTRICULAR FIBRILLATION [None]
  - VOMITING [None]
  - WEIGHT DECREASED [None]
